FAERS Safety Report 17213013 (Version 1)
Quarter: 2019Q4

REPORT INFORMATION
  Report Type: Report from Study
  Country: CO (occurrence: CO)
  Receive Date: 20191230
  Receipt Date: 20191230
  Transmission Date: 20200122
  Serious: Yes (Hospitalization, Other)
  Sender: FDA-Public Use
  Company Number: CO-ASTELLAS-2019US051578

PATIENT
  Age: 18 Year
  Sex: Male
  Weight: 42 kg

DRUGS (1)
  1. TACROLIMUS. [Suspect]
     Active Substance: TACROLIMUS
     Indication: RENAL TRANSPLANT
     Dosage: 3 MG, ONCE DAILY (3 CAPSULES OF 1 MG)
     Route: 048
     Dates: start: 20130619

REACTIONS (6)
  - Renal impairment [Unknown]
  - Epistaxis [Recovered/Resolved]
  - Mouth haemorrhage [Recovered/Resolved]
  - Fluid retention [Unknown]
  - Pyrexia [Recovered/Resolved]
  - Seizure [Recovered/Resolved]

NARRATIVE: CASE EVENT DATE: 20191111
